FAERS Safety Report 20041901 (Version 3)
Quarter: 2021Q4

REPORT INFORMATION
  Report Type: Report from Study
  Country: CA (occurrence: None)
  Receive Date: 20211108
  Receipt Date: 20211215
  Transmission Date: 20220303
  Serious: Yes (Hospitalization)
  Sender: FDA-Public Use
  Company Number: CA-ROCHE-2946739

PATIENT
  Age: 42 Year
  Sex: Female
  Weight: 72 kg

DRUGS (9)
  1. ADO-TRASTUZUMAB EMTANSINE [Suspect]
     Active Substance: ADO-TRASTUZUMAB EMTANSINE
     Indication: Breast cancer metastatic
     Route: 042
     Dates: start: 20210805, end: 20211007
  2. TUCATINIB [Suspect]
     Active Substance: TUCATINIB
     Indication: Breast cancer metastatic
     Route: 065
     Dates: start: 20210805, end: 20211006
  3. APIXABAN [Concomitant]
     Active Substance: APIXABAN
     Route: 065
     Dates: start: 202103
  4. MORPHINE [Concomitant]
     Active Substance: MORPHINE
     Route: 065
     Dates: start: 20210928
  5. KEPPRA XR [Concomitant]
     Active Substance: LEVETIRACETAM
     Dates: start: 20210221
  6. ZOMETA [Concomitant]
     Active Substance: ZOLEDRONIC ACID
     Dates: start: 20180117
  7. PANTOPRAZOLE SODIUM [Concomitant]
     Active Substance: PANTOPRAZOLE SODIUM
     Dates: start: 2017
  8. CELEBREX [Concomitant]
     Active Substance: CELECOXIB
     Dates: start: 2021
  9. TYLENOL [Concomitant]
     Active Substance: ACETAMINOPHEN
     Dates: start: 2021

REACTIONS (2)
  - Pneumonia [Not Recovered/Not Resolved]
  - Tumour associated fever [Recovered/Resolved]

NARRATIVE: CASE EVENT DATE: 20211020
